FAERS Safety Report 7101583-3 (Version None)
Quarter: 2010Q4

REPORT INFORMATION
  Report Type: 
  Country: None (occurrence: None)
  Receive Date: 20101115
  Receipt Date: 20101109
  Transmission Date: 20110411
  Serious: Yes (Hospitalization)
  Sender: FDA-Public Use
  Company Number: FR-PFIZER INC-2010144338

PATIENT
  Age: 72 Year
  Sex: Male

DRUGS (5)
  1. TAHOR [Suspect]
     Dosage: 20 MG, 1X/DAY
     Route: 048
     Dates: start: 20101014, end: 20101022
  2. AUGMENTIN '125' [Suspect]
     Dosage: 1 DF, 3X/DAY
     Route: 048
     Dates: start: 20101010, end: 20101019
  3. METFORMIN [Concomitant]
     Dosage: 500 MG, 2X/DAY
     Route: 048
     Dates: start: 20101020
  4. PIPERACILLIN AND TAZOBACTAM [Concomitant]
     Dosage: UNK
     Route: 042
     Dates: start: 20101020
  5. AMIKIN [Concomitant]
     Dosage: 1.25 G, 1X/DAY
     Route: 042
     Dates: start: 20101020

REACTIONS (1)
  - RASH MACULO-PAPULAR [None]
